FAERS Safety Report 18249562 (Version 1)
Quarter: 2020Q3

REPORT INFORMATION
  Report Type: Spontaneous
  Country: US (occurrence: US)
  Receive Date: 20200909
  Receipt Date: 20200909
  Transmission Date: 20201103
  Serious: Yes (Other)
  Sender: FDA-Public Use
  Company Number: US-MACLEODS PHARMACEUTICALS US LTD-MAC2020028032

PATIENT

DRUGS (13)
  1. AMLODIPINE [Suspect]
     Active Substance: AMLODIPINE BESYLATE
     Indication: HYPERTENSION
     Dosage: UNK
     Route: 065
  2. SERTRALINE [Suspect]
     Active Substance: SERTRALINE HYDROCHLORIDE
     Indication: PANIC DISORDER
     Dosage: UNK, SELF TITRATED, CUTTING 50 MG IN TWO HALF
     Route: 065
     Dates: start: 202006
  3. VITAMIN D [Concomitant]
     Active Substance: VITAMIN D NOS
     Indication: PRODUCT USED FOR UNKNOWN INDICATION
     Dosage: UNK
     Route: 065
  4. SERTRALINE [Suspect]
     Active Substance: SERTRALINE HYDROCHLORIDE
     Dosage: UNK, CUTTING TABLET IN QUARTER
     Route: 065
     Dates: end: 20200809
  5. TRAMADOL. [Concomitant]
     Active Substance: TRAMADOL
     Indication: FIBROMYALGIA
  6. CLONAZEPAM. [Concomitant]
     Active Substance: CLONAZEPAM
     Indication: ANXIETY
     Dosage: 0.5 MILLIGRAM, BID
     Route: 065
  7. SERTRALINE [Suspect]
     Active Substance: SERTRALINE HYDROCHLORIDE
     Indication: ANXIETY
     Dosage: 1 DOSAGE FORM, QD
     Route: 048
     Dates: end: 202006
  8. HYDROCHLOROTHIAZIDE. [Concomitant]
     Active Substance: HYDROCHLOROTHIAZIDE
     Indication: HYPERTENSION
     Dosage: 25 MILLIGRAM, QD
     Route: 065
  9. DILTIAZEM ZYDUS [Suspect]
     Active Substance: DILTIAZEM
     Dosage: 120 MILLIGRAM, QD, DOSE DECREASED
     Route: 048
     Dates: start: 202006, end: 202006
  10. LOSARTAN. [Concomitant]
     Active Substance: LOSARTAN
     Indication: HYPERTENSION
     Dosage: 50 MILLIGRAM, BID
     Route: 065
  11. DILTIAZEM ZYDUS [Suspect]
     Active Substance: DILTIAZEM
     Indication: HYPERTENSION
     Dosage: 1 DOSAGE FORM, QD
     Route: 048
     Dates: start: 201908
  12. DILTIAZEM ZYDUS [Suspect]
     Active Substance: DILTIAZEM
     Dosage: 240 MILLIGRAM, QD, DOSE INCREASED
     Route: 048
  13. TRAMADOL. [Concomitant]
     Active Substance: TRAMADOL
     Indication: ARTHRITIS
     Dosage: 50 MILLIGRAM, BID
     Route: 065

REACTIONS (16)
  - Sinus arrhythmia [Recovered/Resolved]
  - Intentional product use issue [Recovered/Resolved]
  - Feeling hot [Not Recovered/Not Resolved]
  - Cough [Recovered/Resolved]
  - Vertigo [Recovered/Resolved]
  - COVID-19 [Recovered/Resolved]
  - Ventricular extrasystoles [Recovered/Resolved]
  - Alopecia [Recovered/Resolved]
  - Loss of consciousness [Recovered/Resolved]
  - Supraventricular extrasystoles [Recovered/Resolved]
  - Influenza [Recovered/Resolved]
  - Hypertension [Recovered/Resolved]
  - Pyrexia [Recovered/Resolved]
  - Arrhythmia [Recovered/Resolved]
  - Nocturia [Recovered/Resolved]
  - Drug ineffective [Recovered/Resolved]

NARRATIVE: CASE EVENT DATE: 201912
